FAERS Safety Report 16540858 (Version 1)
Quarter: 2019Q3

REPORT INFORMATION
  Report Type: Spontaneous
  Country: US (occurrence: US)
  Receive Date: 20190708
  Receipt Date: 20190708
  Transmission Date: 20191004
  Serious: No
  Sender: FDA-Public Use
  Company Number: US-SA-2019SA183136

PATIENT
  Age: 64 Year
  Sex: Female
  Weight: 67.57 kg

DRUGS (14)
  1. FABRAZYME [Suspect]
     Active Substance: AGALSIDASE BETA
     Indication: FABRY^S DISEASE
     Dosage: 65 MG, QOW
     Route: 041
     Dates: start: 20180611
  2. ASPIRIN [ACETYLSALICYLIC ACID] [Concomitant]
     Active Substance: ASPIRIN
     Dosage: 1 DF, QD
     Route: 048
     Dates: start: 20180611
  3. CRESTOR [Concomitant]
     Active Substance: ROSUVASTATIN CALCIUM
     Dosage: 1 DF, QD
     Route: 048
     Dates: start: 20190411
  4. C 500 [ASCORBIC ACID] [Concomitant]
     Dosage: 1 DF, QD
     Route: 048
     Dates: start: 20180611
  5. DIPHENHYDRAMINE. [Concomitant]
     Active Substance: DIPHENHYDRAMINE
     Indication: ANAPHYLACTIC REACTION
     Dosage: 25 MG
     Route: 048
     Dates: start: 20180910
  6. HEPARIN [Concomitant]
     Active Substance: HEPARIN SODIUM
     Dosage: 100 IU/ML
     Route: 042
     Dates: start: 20180910
  7. B 100 [Concomitant]
     Dosage: 1 DF, QD
     Route: 048
     Dates: start: 20180830
  8. ALPHA LIPOIC [Concomitant]
     Dosage: 1 DF, QD
     Route: 048
     Dates: start: 20180611
  9. NORMAL SALINE [Concomitant]
     Active Substance: SODIUM CHLORIDE
     Dosage: 0.9 %
     Route: 042
     Dates: start: 20180910
  10. TURMERIC [CURCUMA LONGA] [Concomitant]
     Dosage: 1 DF, QD
     Route: 048
     Dates: start: 20180611
  11. COENZYME Q10 [Concomitant]
     Active Substance: UBIDECARENONE
     Dosage: 2 DF, QD
     Route: 048
     Dates: start: 20180611
  12. STERILE WATER [Concomitant]
     Active Substance: WATER
     Dosage: 13 ML
     Route: 042
     Dates: start: 20180910
  13. EPINEPHRINE. [Concomitant]
     Active Substance: EPINEPHRINE
     Indication: ANAPHYLACTIC REACTION
     Dosage: 0.3 MG, PRN
     Route: 030
     Dates: start: 20180910
  14. VITAMINS NOS [Concomitant]
     Active Substance: VITAMINS
     Dosage: 1 DF, QD
     Route: 048
     Dates: start: 20180611

REACTIONS (1)
  - Bronchitis [Unknown]
